FAERS Safety Report 4581121-X (Version None)
Quarter: 2005Q1

REPORT INFORMATION
  Report Type: 
  Country: None (occurrence: None)
  Receive Date: 20050127
  Receipt Date: 20040820
  Transmission Date: 20050727
  Serious: No
  Sender: FDA-Public Use
  Company Number: USA040876089

PATIENT
  Age: 49 Year
  Sex: Female
  Weight: 95 kg

DRUGS (8)
  1. STRATTERA [Suspect]
     Indication: ATTENTION DEFICIT/HYPERACTIVITY DISORDER
     Dosage: 60 MG
     Dates: start: 20040728
  2. LEXAPRO [Concomitant]
  3. TRAZODONE [Concomitant]
  4. LEVOXYL [Concomitant]
  5. ALBUTEROL [Concomitant]
  6. SINGULAIR (MONTELUKAST) [Concomitant]
  7. ADVAIR DISKUS 100/50 [Concomitant]
  8. ZYRTEC-D 12 HOUR [Concomitant]

REACTIONS (8)
  - DECREASED APPETITE [None]
  - DRY MOUTH [None]
  - FEELING ABNORMAL [None]
  - HALITOSIS [None]
  - IMPULSIVE BEHAVIOUR [None]
  - NAUSEA [None]
  - RESTLESSNESS [None]
  - THIRST [None]
